FAERS Safety Report 15656161 (Version 1)
Quarter: 2018Q4

REPORT INFORMATION
  Report Type: Spontaneous
  Country: US (occurrence: US)
  Receive Date: 20181126
  Receipt Date: 20181126
  Transmission Date: 20190205
  Serious: Yes (Hospitalization)
  Sender: FDA-Public Use
  Company Number: US-TEVA-2018-US-978682

PATIENT
  Sex: Female

DRUGS (2)
  1. DEXTROAMPHET SACCHARAT, AMPHET ASPARTATE, DEXTROAMPHET SULFATE AND AMPHET SULFAT [Suspect]
     Active Substance: AMPHETAMINE ASPARTATE\AMPHETAMINE SULFATE\DEXTROAMPHETAMINE SACCHARATE\DEXTROAMPHETAMINE SULFATE
     Indication: DEPRESSED MOOD
     Route: 065
  2. XANAX [Suspect]
     Active Substance: ALPRAZOLAM
     Route: 065

REACTIONS (4)
  - Diarrhoea [Unknown]
  - Atrial fibrillation [Recovered/Resolved]
  - Somnolence [Unknown]
  - Eating disorder [Unknown]
